FAERS Safety Report 6297801-4 (Version None)
Quarter: 2009Q3

REPORT INFORMATION
  Report Type: 
  Country: None (occurrence: None)
  Receive Date: 20090804
  Receipt Date: 20090804
  Transmission Date: 20100115
  Serious: Yes (Death, Life-Threatening, Hospitalization, Other)
  Sender: FDA-Public Use
  Company Number: None

PATIENT
  Age: 82 Year
  Sex: Female
  Weight: 56.6996 kg

DRUGS (1)
  1. LASIX [Suspect]
     Indication: CARDIAC FAILURE CONGESTIVE
     Dates: start: 20090601, end: 20090621

REACTIONS (6)
  - CARDIAC FAILURE [None]
  - CONVULSION [None]
  - ELECTROLYTE IMBALANCE [None]
  - EMBOLISM [None]
  - GANGRENE [None]
  - SHOCK [None]
